FAERS Safety Report 20392504 (Version 1)
Quarter: 2022Q1

REPORT INFORMATION
  Report Type: Spontaneous
  Country: CZ (occurrence: CZ)
  Receive Date: 20220128
  Receipt Date: 20220128
  Transmission Date: 20220423
  Serious: Yes (Other)
  Sender: FDA-Public Use
  Company Number: CZ-NOVARTISPH-NVSC2021CZ296286

PATIENT
  Age: 84 Year
  Sex: Female

DRUGS (5)
  1. BEOVU [Suspect]
     Active Substance: BROLUCIZUMAB-DBLL
     Indication: Age-related macular degeneration
     Dosage: UNK
     Route: 031
     Dates: start: 20210929
  2. BEOVU [Suspect]
     Active Substance: BROLUCIZUMAB-DBLL
     Indication: Choroidal neovascularisation
     Dosage: UNK
     Route: 031
     Dates: start: 20211101
  3. INDAPAMIDE\PERINDOPRIL ERBUMINE [Concomitant]
     Active Substance: INDAPAMIDE\PERINDOPRIL ERBUMINE
     Indication: Product used for unknown indication
     Dosage: UNK, QD (2 / 0.625) 1-0-0
     Route: 065
  4. ATORVASTATIN [Concomitant]
     Active Substance: ATORVASTATIN
     Indication: Product used for unknown indication
     Dosage: 20 MG, QD, (MON-FRI, 0-0-1)
     Route: 065
  5. VERTIMED [Concomitant]
     Indication: Product used for unknown indication
     Dosage: UNK, BID (1-0-1)
     Route: 065

REACTIONS (10)
  - Posterior capsule opacification [Unknown]
  - Detachment of retinal pigment epithelium [Unknown]
  - Iridocyclitis [Not Recovered/Not Resolved]
  - Vitritis [Not Recovered/Not Resolved]
  - Keratic precipitates [Unknown]
  - Retinal haemorrhage [Unknown]
  - Retinal depigmentation [Unknown]
  - Vitreous opacities [Unknown]
  - Vision blurred [Unknown]
  - Vitreous floaters [Unknown]

NARRATIVE: CASE EVENT DATE: 20211203
